FAERS Safety Report 10215193 (Version 2)
Quarter: 2014Q2

REPORT INFORMATION
  Report Type: Report from Study
  Country: US (occurrence: US)
  Receive Date: 20140603
  Receipt Date: 20140603
  Transmission Date: 20141212
  Serious: Yes (Hospitalization)
  Sender: FDA-Public Use
  Company Number: PHEH2014US009575

PATIENT
  Sex: Female

DRUGS (14)
  1. TOBI [Suspect]
     Indication: CYSTIC FIBROSIS
     Dosage: 300 MG/5ML, BID
     Route: 055
  2. TOBI [Suspect]
     Dosage: UNK
     Dates: start: 201403
  3. TOBI PODHALER [Suspect]
     Indication: CYSTIC FIBROSIS
     Dosage: 112 MG, BID
     Route: 055
     Dates: start: 201403, end: 201403
  4. FLOVENT [Concomitant]
  5. PULMOZYME [Concomitant]
  6. ZITHROMYCIN [Concomitant]
  7. ALBUTEROL [Concomitant]
  8. DIVALPROEX [Concomitant]
  9. OMEPRAZOLE [Concomitant]
  10. FLOQUIN [Concomitant]
  11. CETRIZINE [Concomitant]
  12. ESCITALOPRAM [Concomitant]
  13. LORAZEPAM [Concomitant]
  14. GABAPENTIN [Concomitant]

REACTIONS (7)
  - Attention deficit/hyperactivity disorder [Not Recovered/Not Resolved]
  - Emotional disorder [Not Recovered/Not Resolved]
  - Condition aggravated [Not Recovered/Not Resolved]
  - Bacterial infection [Not Recovered/Not Resolved]
  - Cystic fibrosis [Not Recovered/Not Resolved]
  - Viral infection [Not Recovered/Not Resolved]
  - Drug administered to patient of inappropriate age [Not Recovered/Not Resolved]
